FAERS Safety Report 8349749-9 (Version None)
Quarter: 2012Q2

REPORT INFORMATION
  Report Type: 
  Country: None (occurrence: None)
  Receive Date: 20120510
  Receipt Date: 20120503
  Transmission Date: 20120825
  Serious: Yes (Hospitalization, Other)
  Sender: FDA-Public Use
  Company Number: US-AMGEN-USASP2012028196

PATIENT
  Age: 57 Year
  Sex: Female

DRUGS (1)
  1. ENBREL [Suspect]
     Indication: RHEUMATOID ARTHRITIS
     Dosage: 50 MG, QWK
     Dates: start: 20050106

REACTIONS (7)
  - ULCER HAEMORRHAGE [None]
  - SPLENIC VARICES [None]
  - PLATELET COUNT DECREASED [None]
  - PARANASAL SINUS HYPERSECRETION [None]
  - SINUS DISORDER [None]
  - COUGH [None]
  - INJECTION SITE DISCOMFORT [None]
